FAERS Safety Report 12982677 (Version 3)
Quarter: 2017Q3

REPORT INFORMATION
  Report Type: Spontaneous
  Country: FR (occurrence: FR)
  Receive Date: 20161129
  Receipt Date: 20170728
  Transmission Date: 20171127
  Serious: Yes (Hospitalization, Other)
  Sender: FDA-Public Use
  Company Number: FR-GLAXOSMITHKLINE-FR2016GSK174623

PATIENT
  Age: 36 Year
  Sex: Male

DRUGS (6)
  1. PARACETAMOL [Suspect]
     Active Substance: ACETAMINOPHEN
     Indication: PAIN
     Dosage: 1 G, 6D
     Route: 048
     Dates: start: 20161017, end: 20161021
  2. SOTALOL CHLORHYDRATE [Concomitant]
     Indication: CARDIAC FLUTTER
     Dosage: 80 MG, BID
     Route: 048
  3. VOLTARENE [Suspect]
     Active Substance: DICLOFENAC SODIUM
     Indication: ASTHMA
     Dosage: UNK
     Route: 048
     Dates: start: 20161017, end: 20161021
  4. VENTOLINE [Suspect]
     Active Substance: ALBUTEROL
     Indication: ASTHMA
     Dosage: UNK
     Route: 055
     Dates: start: 20161017, end: 20161021
  5. AUGMENTIN [Suspect]
     Active Substance: AMOXICILLIN\CLAVULANATE POTASSIUM
     Indication: ASTHMA
     Dosage: 1 G, TID
     Route: 048
     Dates: start: 20161017, end: 20161021
  6. FLIXOTIDE [Suspect]
     Active Substance: FLUTICASONE PROPIONATE
     Indication: ASTHMA
     Dosage: UNK
     Route: 055
     Dates: start: 20161017, end: 20161021

REACTIONS (1)
  - Acute kidney injury [Recovered/Resolved]

NARRATIVE: CASE EVENT DATE: 20161021
